FAERS Safety Report 6099060-4 (Version None)
Quarter: 2009Q1

REPORT INFORMATION
  Report Type: 
  Country: None (occurrence: None)
  Receive Date: 20090302
  Receipt Date: 20090220
  Transmission Date: 20090719
  Serious: Yes (Hospitalization, Other)
  Sender: FDA-Public Use
  Company Number: FI-ELI_LILLY_AND_COMPANY-FI200902005012

PATIENT
  Sex: Female

DRUGS (6)
  1. ZYPREXA [Suspect]
     Indication: PARANOIA
     Dosage: 5 MG, 3/D
     Route: 048
     Dates: start: 20081016, end: 20090206
  2. ABSENOR [Concomitant]
     Indication: EPILEPSY
     Dosage: 300 MG, OTHER
     Route: 048
  3. TEMESTA [Concomitant]
     Indication: RESTLESSNESS
     Dosage: 1 MG, 3/D
     Route: 048
  4. DISPERIN [Concomitant]
     Dosage: 50 MG, DAILY (1/D)
     Route: 048
  5. AKINETON [Concomitant]
     Dosage: 2 MG, 3/D
     Route: 048
  6. OPAMOX [Concomitant]
     Indication: RESTLESSNESS
     Dosage: 30 MG, AS NEEDED

REACTIONS (3)
  - BLOOD CREATINE PHOSPHOKINASE INCREASED [None]
  - NEUROLEPTIC MALIGNANT SYNDROME [None]
  - PNEUMONIA [None]
